FAERS Safety Report 8156124-9 (Version None)
Quarter: 2012Q1

REPORT INFORMATION
  Report Type: 
  Country: None (occurrence: None)
  Receive Date: 20120221
  Receipt Date: 20120221
  Transmission Date: 20120608
  Serious: Yes (Other)
  Sender: FDA-Public Use
  Company Number: None

PATIENT
  Age: 46 Year
  Sex: Female
  Weight: 101.1521 kg

DRUGS (1)
  1. IMITREX [Suspect]
     Indication: MIGRAINE
     Dosage: 6MG 1-2 X DAILY
     Dates: start: 20110101, end: 20120101

REACTIONS (3)
  - LOCAL SWELLING [None]
  - SALIVARY HYPERSECRETION [None]
  - NAUSEA [None]
